FAERS Safety Report 7491659-3 (Version None)
Quarter: 2011Q2

REPORT INFORMATION
  Report Type: 
  Country: None (occurrence: None)
  Receive Date: 20110518
  Receipt Date: 20110518
  Transmission Date: 20111010
  Serious: Yes (Other)
  Sender: FDA-Public Use
  Company Number: None

PATIENT
  Age: 88 Year
  Sex: Female
  Weight: 39.9165 kg

DRUGS (2)
  1. PRADAXA [Concomitant]
  2. PRADAXA [Suspect]
     Indication: ATRIAL FIBRILLATION
     Dosage: 1 CAPSULE TWICE DAILY PO
     Route: 048
     Dates: start: 20110301, end: 20110517

REACTIONS (3)
  - HUMERUS FRACTURE [None]
  - FALL [None]
  - CONTUSION [None]
